FAERS Safety Report 6205095-0 (Version None)
Quarter: 2009Q2

REPORT INFORMATION
  Report Type: 
  Country: None (occurrence: None)
  Receive Date: 20090527
  Receipt Date: 20090223
  Transmission Date: 20091009
  Serious: No
  Sender: FDA-Public Use
  Company Number: US-ABBOTT-09P-163-0558771-00

PATIENT
  Sex: Male

DRUGS (7)
  1. SIMCOR [Suspect]
     Indication: BLOOD CHOLESTEROL INCREASED
     Dosage: 500/20 MG  AT NIGHT
     Dates: start: 20090123
  2. ASPIRIN [Concomitant]
     Indication: DRUG USE FOR UNKNOWN INDICATION
     Route: 048
  3. IMODIUM [Concomitant]
     Indication: ABDOMINAL DISCOMFORT
  4. AMLODIPINE [Concomitant]
     Indication: DRUG USE FOR UNKNOWN INDICATION
     Route: 048
  5. HUMLOG INSULIN [Concomitant]
     Indication: DRUG USE FOR UNKNOWN INDICATION
     Route: 058
  6. DIOVAN [Concomitant]
     Indication: DRUG USE FOR UNKNOWN INDICATION
  7. ACTOPLUS MET [Concomitant]
     Indication: DRUG USE FOR UNKNOWN INDICATION
     Route: 048

REACTIONS (2)
  - DIARRHOEA [None]
  - PRURITUS [None]
